FAERS Safety Report 16160763 (Version 3)
Quarter: 2020Q1

REPORT INFORMATION
  Report Type: Spontaneous
  Country: US (occurrence: US)
  Receive Date: 20190405
  Receipt Date: 20200122
  Transmission Date: 20200409
  Serious: Yes (Other)
  Sender: FDA-Public Use
  Company Number: US-ROCHE-2296111

PATIENT
  Age: 51 Year
  Sex: Female
  Weight: 74.91 kg

DRUGS (1)
  1. OCREVUS [Suspect]
     Active Substance: OCRELIZUMAB
     Indication: PRIMARY PROGRESSIVE MULTIPLE SCLEROSIS
     Dosage: HALF DOSE ;ONGOING: UNKNOWN; LAST DOSE: 21/JAN/2019?DATE OF TRETAMENT: 02/JUL/2018, 16/JUL/2018, 1/2
     Route: 042
     Dates: start: 20180702

REACTIONS (2)
  - Intraductal proliferative breast lesion [Recovered/Resolved]
  - Movement disorder [Not Recovered/Not Resolved]

NARRATIVE: CASE EVENT DATE: 201812
